FAERS Safety Report 21764151 (Version 5)
Quarter: 2023Q1

REPORT INFORMATION
  Report Type: Report from Study
  Country: CZ (occurrence: None)
  Receive Date: 20221222
  Receipt Date: 20230327
  Transmission Date: 20230418
  Serious: Yes (Hospitalization)
  Sender: FDA-Public Use
  Company Number: CZ-ROCHE-3246564

PATIENT
  Age: 59 Year
  Sex: Male
  Weight: 101 kg

DRUGS (14)
  1. RITUXIMAB [Suspect]
     Active Substance: RITUXIMAB
     Indication: Chronic lymphocytic leukaemia
     Dosage: CYCLICAL?ON 29/NOV/2022, PATIENT RECEIVED THE LAST DOSE OF RITUXIMAB (CYCLE THREE) PRIOR TO SAE,
     Route: 042
     Dates: start: 20221004
  2. RITUXIMAB [Suspect]
     Active Substance: RITUXIMAB
     Indication: Lymphocytic lymphoma
     Dosage: CYCLE TWO
     Route: 042
     Dates: start: 20221101
  3. RITUXIMAB [Suspect]
     Active Substance: RITUXIMAB
     Dosage: CYCLE 3
     Route: 042
     Dates: start: 20221129
  4. RITUXIMAB [Suspect]
     Active Substance: RITUXIMAB
     Dosage: DATE OF LAST DOSE OF RITUXIMAB PRIOR TO ONSET OF SAE 24/JAN/2023
     Route: 042
     Dates: start: 20221004
  5. BENDAMUSTINE [Suspect]
     Active Substance: BENDAMUSTINE
     Indication: Chronic lymphocytic leukaemia
     Dosage: CYCLICAL?ON 30/NOV/2022, PATIENT RECEIVED THE LAST DOSE OF BENDAMUSTINE (CYCLE THREE) PRIOR TO SAE,
     Route: 042
     Dates: start: 20221004
  6. BENDAMUSTINE [Suspect]
     Active Substance: BENDAMUSTINE
     Indication: Lymphocytic lymphoma
     Dosage: CYCLE TWO
     Route: 042
     Dates: start: 20221101
  7. BENDAMUSTINE [Suspect]
     Active Substance: BENDAMUSTINE
     Dosage: CYCLE 3
     Route: 042
     Dates: start: 20221130
  8. BENDAMUSTINE [Suspect]
     Active Substance: BENDAMUSTINE
     Dosage: DATE OF LAST DOSE OF BENDAMUSTINEPRIOR TO SAE 25/JAN/2023
     Route: 042
     Dates: start: 20221004
  9. ALLOPURINOL [Concomitant]
     Active Substance: ALLOPURINOL
     Dates: start: 20220905
  10. COTRIMOXAZOLE [Concomitant]
     Active Substance: SULFAMETHOXAZOLE\TRIMETHOPRIM
  11. CALCIUM CARBONATE\CALCIUM LACTATE GLUCONATE [Concomitant]
     Active Substance: CALCIUM CARBONATE\CALCIUM LACTATE GLUCONATE
  12. PIPERACILLIN SODIUM\TAZOBACTAM SODIUM [Concomitant]
     Active Substance: PIPERACILLIN SODIUM\TAZOBACTAM SODIUM
     Route: 042
     Dates: start: 20221207
  13. FILGRASTIM [Concomitant]
     Active Substance: FILGRASTIM
     Dates: start: 20221207
  14. SULFAMETHOXAZOLE\TRIMETHOPRIM [Concomitant]
     Active Substance: SULFAMETHOXAZOLE\TRIMETHOPRIM

REACTIONS (2)
  - COVID-19 pneumonia [Recovered/Resolved]
  - Candida infection [Recovered/Resolved]

NARRATIVE: CASE EVENT DATE: 20221207
